FAERS Safety Report 9951732 (Version 2)
Quarter: 2014Q2

REPORT INFORMATION
  Report Type: Spontaneous
  Country: US (occurrence: US)
  Receive Date: 20140304
  Receipt Date: 20140407
  Transmission Date: 20141212
  Serious: Yes (Hospitalization, Other)
  Sender: FDA-Public Use
  Company Number: US-ABBVIE-14P-163-1208665-00

PATIENT
  Age: 17 Year
  Sex: 0

DRUGS (4)
  1. VALPROIC ACID [Suspect]
     Indication: PRODUCT USED FOR UNKNOWN INDICATION
  2. ONFI [Interacting]
     Indication: CONVULSION
  3. ALL OTHER THERAPEUTIC PRODUCTS [Interacting]
     Indication: PRODUCT USED FOR UNKNOWN INDICATION
  4. LAMOTRIGINE [Interacting]
     Indication: PRODUCT USED FOR UNKNOWN INDICATION

REACTIONS (6)
  - Drug interaction [Unknown]
  - Encephalopathy [Unknown]
  - Convulsion [Recovered/Resolved]
  - Somnolence [Recovering/Resolving]
  - Ammonia increased [Recovered/Resolved]
  - Anticonvulsant drug level increased [Unknown]
